FAERS Safety Report 25302687 (Version 2)
Quarter: 2025Q2

REPORT INFORMATION
  Report Type: Report from Study
  Country: US (occurrence: US)
  Receive Date: 20250512
  Receipt Date: 20250523
  Transmission Date: 20250716
  Serious: Yes (Hospitalization)
  Sender: MALLINCKRODT
  Company Number: US-MALLINCKRODT-MNK202502762

PATIENT
  Age: 64 Year
  Sex: Male

DRUGS (3)
  1. CORTICOTROPIN [Suspect]
     Active Substance: CORTICOTROPIN
     Indication: Polymyositis
  2. CORTICOTROPIN [Suspect]
     Active Substance: CORTICOTROPIN
     Indication: Dermatomyositis
  3. CORTICOTROPIN [Suspect]
     Active Substance: CORTICOTROPIN
     Route: 058

REACTIONS (16)
  - Balance disorder [Unknown]
  - Hospitalisation [Unknown]
  - Heart rate irregular [Unknown]
  - Anxiety [Unknown]
  - Eye disorder [Unknown]
  - Pruritus [Unknown]
  - Visual impairment [Unknown]
  - Muscle spasms [Unknown]
  - Feeling abnormal [Unknown]
  - Dizziness [Unknown]
  - Fatigue [Unknown]
  - Swelling of eyelid [Unknown]
  - Insomnia [Recovering/Resolving]
  - Asthenia [Unknown]
  - Peripheral swelling [Unknown]
  - Joint swelling [Unknown]
